FAERS Safety Report 4446386-3 (Version None)
Quarter: 2004Q3

REPORT INFORMATION
  Report Type: 
  Country: None (occurrence: None)
  Receive Date: 20040902
  Receipt Date: 20040816
  Transmission Date: 20050211
  Serious: Yes (Death)
  Sender: FDA-Public Use
  Company Number: 2004AC00226

PATIENT
  Age: 76 Year
  Sex: Male

DRUGS (1)
  1. LIDOCAINE [Suspect]
     Indication: VENTRICULAR ARRHYTHMIA
     Dosage: 500 MG IV
     Route: 042

REACTIONS (7)
  - BRAIN OEDEMA [None]
  - CARDIO-RESPIRATORY ARREST [None]
  - GRAND MAL CONVULSION [None]
  - HYPOXIC ENCEPHALOPATHY [None]
  - MEDICATION ERROR [None]
  - OVERDOSE [None]
  - POISONING [None]
